FAERS Safety Report 5923747-4 (Version None)
Quarter: 2008Q3

REPORT INFORMATION
  Report Type: 
  Country: None (occurrence: None)
  Receive Date: 20080909
  Receipt Date: 20080110
  Transmission Date: 20090109
  Serious: Yes (Death, Hospitalization)
  Sender: FDA-Public Use
  Company Number: 163-20785-07111523

PATIENT
  Age: 54 Year
  Sex: Male

DRUGS (2)
  1. THALOMID [Suspect]
     Indication: AMYOTROPHIC LATERAL SCLEROSIS
     Dosage: 300 MG, QD, ORAL : 100-400MG, QD, ORAL
     Route: 048
     Dates: start: 20070101, end: 20071104
  2. THALOMID [Suspect]
     Indication: AMYOTROPHIC LATERAL SCLEROSIS
     Dosage: 300 MG, QD, ORAL : 100-400MG, QD, ORAL
     Route: 048
     Dates: start: 20070319

REACTIONS (3)
  - AMYOTROPHIC LATERAL SCLEROSIS [None]
  - DISEASE PROGRESSION [None]
  - PNEUMONIA [None]
